FAERS Safety Report 4365528-1 (Version None)
Quarter: 2004Q2

REPORT INFORMATION
  Report Type: 
  Country: None (occurrence: None)
  Receive Date: 20040526
  Receipt Date: 20040316
  Transmission Date: 20050107
  Serious: Yes (Hospitalization)
  Sender: FDA-Public Use
  Company Number: JP-GLAXOSMITHKLINE-B0327085A

PATIENT
  Age: 54 Year
  Sex: Male
  Weight: 50 kg

DRUGS (6)
  1. VALTREX [Suspect]
     Indication: HERPES ZOSTER
     Dosage: 500MG TWICE PER DAY
     Route: 048
     Dates: start: 20040312, end: 20040313
  2. GASTER D [Concomitant]
     Indication: GASTRIC ULCER
     Dosage: 20MG PER DAY
     Route: 048
     Dates: start: 20030319, end: 20040314
  3. TANKARU [Concomitant]
     Indication: BLOOD PHOSPHORUS INCREASED
     Dosage: 3G PER DAY
     Route: 048
     Dates: start: 20030319, end: 20040314
  4. RISUMIC [Concomitant]
     Indication: PROCEDURAL HYPOTENSION
     Dosage: 10MG PER DAY
     Route: 048
     Dates: end: 20040314
  5. HAEMODIALYSIS [Concomitant]
  6. VIDARABINE [Concomitant]
     Indication: HERPES ZOSTER
     Route: 061
     Dates: start: 20040312

REACTIONS (7)
  - ASTHENIA [None]
  - BLOOD CREATININE INCREASED [None]
  - DELUSION [None]
  - DIZZINESS [None]
  - HALLUCINATION [None]
  - NERVOUS SYSTEM DISORDER [None]
  - SPEECH DISORDER [None]
